FAERS Safety Report 4954843-6 (Version None)
Quarter: 2006Q1

REPORT INFORMATION
  Report Type: 
  Country: None (occurrence: None)
  Receive Date: 20060327
  Receipt Date: 20051206
  Transmission Date: 20060701
  Serious: Yes (Hospitalization)
  Sender: FDA-Public Use
  Company Number: US-MERCK-0512USA01061

PATIENT
  Age: 82 Year
  Sex: Male
  Weight: 75 kg

DRUGS (22)
  1. VIOXX [Suspect]
     Indication: OSTEOARTHRITIS
     Route: 048
     Dates: start: 19990101, end: 20030101
  2. VIOXX [Suspect]
     Route: 048
     Dates: start: 19990101, end: 20030101
  3. TERAZOSIN HYDROCHLORIDE [Concomitant]
     Indication: BENIGN PROSTATIC HYPERPLASIA
     Route: 048
  4. GLUCOTROL XL [Concomitant]
     Indication: DIABETES MELLITUS
     Route: 048
  5. NORVASC [Concomitant]
     Indication: HYPERTENSION
     Route: 048
     Dates: start: 19980101
  6. NORVASC [Concomitant]
     Indication: ARTERIOSCLEROSIS
     Route: 048
     Dates: start: 19980101
  7. COZAAR [Concomitant]
     Indication: HYPERTENSION
     Route: 048
     Dates: start: 20021001, end: 20030901
  8. COZAAR [Concomitant]
     Indication: CARDIAC DISORDER
     Route: 048
     Dates: start: 20021001, end: 20030901
  9. ZANTAC [Concomitant]
     Indication: GASTROOESOPHAGEAL REFLUX DISEASE
     Route: 048
  10. LASIX [Concomitant]
     Indication: OEDEMA PERIPHERAL
     Route: 048
     Dates: start: 19950101, end: 20050101
  11. POTASSIUM CHLORIDE [Concomitant]
     Indication: BLOOD POTASSIUM DECREASED
     Route: 048
  12. PREVACID [Concomitant]
     Indication: GASTROOESOPHAGEAL REFLUX DISEASE
     Route: 048
  13. SYNTHROID [Concomitant]
     Indication: HYPOTHYROIDISM
     Route: 048
  14. TYLENOL [Concomitant]
     Indication: ARTHRALGIA
     Route: 048
  15. HYTRIN [Concomitant]
     Indication: BENIGN PROSTATIC HYPERPLASIA
     Route: 048
     Dates: start: 20000101
  16. ASPIRIN [Concomitant]
     Route: 048
     Dates: start: 19980101, end: 20030101
  17. CALCIUM (UNSPECIFIED) [Concomitant]
     Route: 048
     Dates: start: 19980101
  18. ZINC (UNSPECIFIED) [Concomitant]
     Route: 048
     Dates: start: 19980101
  19. VITAMIN E [Concomitant]
     Route: 048
     Dates: start: 19980101, end: 20030101
  20. SAW PALMETTO [Concomitant]
     Indication: PROSTATISM
     Route: 048
     Dates: start: 19980101, end: 19990101
  21. FOLIC ACID [Concomitant]
     Route: 048
     Dates: start: 19980101
  22. ASCORBIC ACID [Concomitant]
     Route: 048
     Dates: start: 19980101

REACTIONS (5)
  - ATRIAL FIBRILLATION [None]
  - CORONARY ARTERY SURGERY [None]
  - EXERCISE TEST ABNORMAL [None]
  - HYPERTENSION [None]
  - POST PROCEDURAL COMPLICATION [None]
